FAERS Safety Report 6944491-0 (Version None)
Quarter: 2010Q3

REPORT INFORMATION
  Report Type: 
  Country: None (occurrence: None)
  Receive Date: 20100825
  Receipt Date: 20100825
  Transmission Date: 20110219
  Serious: Yes (Hospitalization)
  Sender: FDA-Public Use
  Company Number: None

PATIENT
  Sex: Female
  Weight: 93.4 kg

DRUGS (3)
  1. CISPLATIN [Suspect]
     Dosage: 150 MG
  2. TAXOL [Suspect]
     Dosage: 270 MG
  3. ENALAPRIL [Concomitant]

REACTIONS (3)
  - ABDOMINAL WALL ABSCESS [None]
  - ASCITES [None]
  - ENTEROCUTANEOUS FISTULA [None]
